FAERS Safety Report 8782862 (Version 1)
Quarter: 2012Q4

REPORT INFORMATION
  Report Type: 
  Country: SE (occurrence: SE)
  Receive Date: 20120913
  Receipt Date: 20120913
  Transmission Date: 20130627
  Serious: Yes (Hospitalization)
  Sender: FDA-Public Use
  Company Number: SE-GLAXOSMITHKLINE-B0829847A

PATIENT
  Age: 23 Year
  Sex: Female

DRUGS (1)
  1. LAMOTRIGINE [Suspect]
     Indication: DEPRESSION
     Dosage: 25MG per day
     Route: 065

REACTIONS (18)
  - Drug reaction with eosinophilia and systemic symptoms [Unknown]
  - Pyrexia [Unknown]
  - Muscle rigidity [Unknown]
  - Malaise [Unknown]
  - Abdominal pain [Unknown]
  - Rash pruritic [Unknown]
  - Lymph node pain [Unknown]
  - Abdominal tenderness [Unknown]
  - Rales [Unknown]
  - C-reactive protein increased [Unknown]
  - Platelet count decreased [Unknown]
  - Transaminases increased [Unknown]
  - Angioedema [Unknown]
  - Urticaria [Unknown]
  - White blood cell count increased [Unknown]
  - Eosinophilia [Unknown]
  - Neutrophilia [Unknown]
  - Procalcitonin increased [Unknown]
